FAERS Safety Report 10196819 (Version 1)
Quarter: 2014Q2

REPORT INFORMATION
  Report Type: Spontaneous
  Country: US (occurrence: None)
  Receive Date: 20140523
  Receipt Date: 20140523
  Transmission Date: 20141212
  Serious: Yes (Death)
  Sender: FDA-Public Use
  Company Number: None

PATIENT
  Age: 3 Year
  Sex: Male
  Weight: 12.5 kg

DRUGS (2)
  1. AVASTIN [Suspect]
     Indication: PULMONARY VEIN STENOSIS
     Dosage: BI-WEEKLY
     Route: 042
     Dates: start: 20140124, end: 20140211
  2. GLEEVEC [Suspect]
     Route: 048
     Dates: start: 20140124, end: 20140317

REACTIONS (5)
  - Tachycardia [None]
  - Hypotension [None]
  - Pulse pressure decreased [None]
  - Pulmonary hypertensive crisis [None]
  - General physical health deterioration [None]
